FAERS Safety Report 7136050-4 (Version None)
Quarter: 2010Q4

REPORT INFORMATION
  Report Type: 
  Country: None (occurrence: None)
  Receive Date: 20101204
  Receipt Date: 20101109
  Transmission Date: 20110411
  Serious: Yes (Other)
  Sender: FDA-Public Use
  Company Number: US-BAYER-201021758NA

PATIENT

DRUGS (16)
  1. YAZ [Suspect]
     Indication: CONTRACEPTION
     Dosage: AS USED DOSE: UNK
     Route: 048
     Dates: start: 20030101, end: 20090401
  2. YASMIN [Suspect]
     Dosage: AS USED DOSE: UNK
     Route: 048
     Dates: start: 20030101, end: 20090401
  3. AMOXICILLIN [Concomitant]
     Dates: start: 20070101, end: 20100101
  4. PHENERGAN [Concomitant]
     Indication: VOMITING
     Dates: start: 20070101
  5. REGLAN [Concomitant]
     Indication: VOMITING
     Dates: start: 20070101, end: 20090430
  6. TRAZODONE [Concomitant]
     Dates: start: 20080101, end: 20090101
  7. SOMA [Concomitant]
     Indication: FIBROMYALGIA
     Dates: start: 20050101, end: 20100101
  8. MORPHINE [Concomitant]
     Dates: start: 20090219
  9. CEPHALEXIN [Concomitant]
     Dates: start: 20090212
  10. OPANA ER NOS [Concomitant]
     Dates: start: 20090202
  11. OXYCONTIN [Concomitant]
     Dates: start: 20090415, end: 20090430
  12. OXCONDONE HCL NOS [Concomitant]
     Dates: start: 20090101
  13. CARISOPRODOL [Concomitant]
     Dates: start: 20090501
  14. ROXICET [Concomitant]
     Dates: end: 20090430
  15. CYMBALTA [Concomitant]
     Dates: end: 20090430
  16. XANAX [Concomitant]
     Dates: end: 20090430

REACTIONS (22)
  - CARPAL TUNNEL SYNDROME [None]
  - CEREBROVASCULAR ACCIDENT [None]
  - COMPLICATED MIGRAINE [None]
  - DIARRHOEA [None]
  - DISEASE RECURRENCE [None]
  - DRUG WITHDRAWAL SYNDROME [None]
  - DYSARTHRIA [None]
  - GAIT DISTURBANCE [None]
  - HEAD INJURY [None]
  - HEADACHE [None]
  - HYPOAESTHESIA [None]
  - HYPOAESTHESIA FACIAL [None]
  - MUSCULAR WEAKNESS [None]
  - NAUSEA [None]
  - PARAESTHESIA [None]
  - RADICULOPATHY [None]
  - RETCHING [None]
  - SPEECH DISORDER [None]
  - SWOLLEN TONGUE [None]
  - VIITH NERVE PARALYSIS [None]
  - VISUAL IMPAIRMENT [None]
  - VOMITING [None]
